FAERS Safety Report 7663015-6 (Version None)
Quarter: 2011Q3

REPORT INFORMATION
  Report Type: 
  Country: None (occurrence: None)
  Receive Date: 20110805
  Receipt Date: 20100805
  Transmission Date: 20111222
  Serious: No
  Sender: FDA-Public Use
  Company Number: US-ABBOTT-10P-163-0662542-00

PATIENT
  Age: 80 Year
  Sex: Male
  Weight: 77.18 kg

DRUGS (5)
  1. NAMENDA [Concomitant]
     Indication: DEMENTIA ALZHEIMER'S TYPE
     Dosage: UNKNOWN
  2. DIOVAN [Concomitant]
     Indication: HYPERTENSION
     Dosage: UNKNOWN
  3. SIMVASTATIN [Concomitant]
     Indication: PRODUCT USED FOR UNKNOWN INDICATION
  4. NIASPAN [Suspect]
     Indication: BLOOD CHOLESTEROL INCREASED
     Dates: start: 20100701
  5. ARICEPT [Concomitant]
     Indication: DEMENTIA ALZHEIMER'S TYPE
     Dosage: UNKNOWN

REACTIONS (2)
  - RASH [None]
  - BLOOD PRESSURE INCREASED [None]
